FAERS Safety Report 5322140-5 (Version None)
Quarter: 2007Q2

REPORT INFORMATION
  Report Type: 
  Country: None (occurrence: None)
  Receive Date: 20070511
  Receipt Date: 20070504
  Transmission Date: 20071010
  Serious: Yes (Other)
  Sender: FDA-Public Use
  Company Number: DE-ELI_LILLY_AND_COMPANY-DE200705001527

PATIENT
  Age: 60 Year
  Sex: Male

DRUGS (2)
  1. CIALIS [Suspect]
     Indication: ERECTILE DYSFUNCTION
     Dosage: 10 MG, 3/W
     Route: 048
  2. CIALIS [Suspect]
     Dosage: 20 MG, 3/W
     Route: 048

REACTIONS (3)
  - CEREBRAL VASOCONSTRICTION [None]
  - HEADACHE [None]
  - VISUAL DISTURBANCE [None]
